FAERS Safety Report 15508676 (Version 1)
Quarter: 2018Q4

REPORT INFORMATION
  Report Type: Spontaneous
  Country: SE (occurrence: SE)
  Receive Date: 20181016
  Receipt Date: 20181016
  Transmission Date: 20190205
  Serious: Yes (Death)
  Sender: FDA-Public Use
  Company Number: SE-TEVA-2018-SE-964369

PATIENT
  Age: 84 Year
  Sex: Female
  Weight: 30 kg

DRUGS (3)
  1. OXASCAND [Suspect]
     Active Substance: OXAZEPAM
     Dosage: 240 MILLIGRAM DAILY; 10 MG/TIM I 24 TIMMAR DYGNET RUNT
     Route: 065
     Dates: end: 201802
  2. MIDAZOLAM [Suspect]
     Active Substance: MIDAZOLAM HYDROCHLORIDE
     Dosage: 7.5 MILLIGRAM DAILY;
     Dates: start: 20180122, end: 20180214
  3. MORPHINE [Suspect]
     Active Substance: MORPHINE
     Dosage: 15 MILLIGRAM DAILY;
     Dates: start: 20180121, end: 201802

REACTIONS (2)
  - Overdose [Fatal]
  - Death [Fatal]

NARRATIVE: CASE EVENT DATE: 201802
